FAERS Safety Report 6241637-7 (Version None)
Quarter: 2009Q2

REPORT INFORMATION
  Report Type: 
  Country: None (occurrence: None)
  Receive Date: 20090623
  Receipt Date: 20050920
  Transmission Date: 20091009
  Serious: Yes (Hospitalization)
  Sender: FDA-Public Use
  Company Number: ES-ROCHE-432891

PATIENT
  Sex: Male
  Weight: 100 kg

DRUGS (51)
  1. DACLIZUMAB [Suspect]
     Dosage: A ONE OFF DOSE OF 2MG/KG GIVEN 24 HOURS PRE-TRANSPLANT.
     Route: 042
     Dates: start: 20040319, end: 20040319
  2. DACLIZUMAB [Suspect]
     Dosage: 1MG/KG GIVEN ONCE EVERY TWO WEEKS FOR FOUR DOSES.
     Route: 042
     Dates: start: 20040402, end: 20040517
  3. MYCOPHENOLATE MOFETIL [Suspect]
     Route: 048
     Dates: start: 20040319
  4. MYCOPHENOLATE MOFETIL [Suspect]
     Route: 048
     Dates: start: 20040320
  5. MYCOPHENOLATE MOFETIL [Suspect]
     Route: 048
     Dates: start: 20060714
  6. MYCOPHENOLATE MOFETIL [Suspect]
     Route: 048
     Dates: start: 20060807
  7. MYCOPHENOLATE MOFETIL [Suspect]
     Route: 048
     Dates: start: 20061102
  8. CYCLOSPORINE [Suspect]
     Route: 048
     Dates: start: 20040319
  9. CYCLOSPORINE [Suspect]
     Route: 048
     Dates: start: 20040828
  10. CYCLOSPORINE [Suspect]
     Route: 048
     Dates: start: 20041220
  11. CYCLOSPORINE [Suspect]
     Route: 048
     Dates: start: 20041223
  12. CYCLOSPORINE [Suspect]
     Route: 048
     Dates: start: 20050314
  13. CYCLOSPORINE [Suspect]
     Route: 048
     Dates: start: 20050603
  14. CYCLOSPORINE [Suspect]
     Route: 048
     Dates: start: 20050720
  15. CYCLOSPORINE [Suspect]
     Route: 048
     Dates: start: 20051027
  16. CYCLOSPORINE [Suspect]
     Route: 048
     Dates: start: 20060307
  17. CYCLOSPORINE [Suspect]
     Route: 048
     Dates: start: 20060705, end: 20061020
  18. PREDNISONE [Suspect]
     Route: 048
     Dates: start: 20040320
  19. PREDNISONE [Suspect]
     Route: 048
     Dates: start: 20040528
  20. PREDNISONE [Suspect]
     Route: 048
     Dates: start: 20041028
  21. PREDNISONE [Suspect]
     Route: 048
     Dates: start: 20050314
  22. PREDNISONE [Suspect]
     Route: 048
     Dates: start: 20050708
  23. PREDNISONE [Suspect]
     Route: 048
     Dates: start: 20050720
  24. PREDNISONE [Suspect]
     Route: 048
     Dates: start: 20051118
  25. METILPREDNISOLONE [Suspect]
     Route: 042
     Dates: start: 20040319, end: 20040320
  26. METILPREDNISOLONE [Suspect]
     Route: 042
     Dates: start: 20040326, end: 20040329
  27. METILPREDNISOLONE [Suspect]
     Route: 042
     Dates: start: 20040706, end: 20040709
  28. CEFTRIAXONE [Concomitant]
     Dosage: FORM: VIAL
     Route: 042
     Dates: start: 20040630, end: 20040702
  29. AMOXICILLIN AND CLAVULANATE POTASSIUM [Concomitant]
     Route: 048
     Dates: start: 20040716, end: 20040719
  30. AMOXICILLIN AND CLAVULANATE POTASSIUM [Concomitant]
     Route: 048
     Dates: start: 20040801, end: 20040822
  31. CEFAZOLIN [Concomitant]
     Route: 042
     Dates: start: 20040320, end: 20040321
  32. CIPROFLOXACIN [Concomitant]
     Route: 042
     Dates: start: 20040322
  33. CIPROFLOXACIN [Concomitant]
     Route: 042
     Dates: start: 20040323
  34. CIPROFLOXACIN [Concomitant]
     Route: 048
     Dates: start: 20040329, end: 20040405
  35. EPOGEN [Concomitant]
     Dosage: DRUG: ERITHROPOIETIN, ROUTE: IV, FORM: VIAL, AMOUNT: 5000 MU
     Route: 050
     Dates: start: 20040320, end: 20040324
  36. EPOGEN [Concomitant]
     Dosage: ROUTE: IV, FORM: VIAL, AMOUNT: 5000 MU
     Route: 050
     Dates: start: 20040325, end: 20040502
  37. EPOGEN [Concomitant]
     Dosage: ROUTE: IV, FORM: VIAL, AMOUNT: 10000 MU
     Route: 050
     Dates: start: 20040528, end: 20040529
  38. EPOGEN [Concomitant]
     Dosage: ROUTE: IM, FORM: VIAL, AMOUNT: 10000 MU
     Route: 050
     Dates: start: 20040531, end: 20040630
  39. EPOGEN [Concomitant]
     Dosage: ROUTE: IV, FORM: VIAL, AMOUNT: 10000 MU
     Route: 050
     Dates: start: 20040704, end: 20040705
  40. EPOGEN [Concomitant]
     Dosage: ROUTE: SC, FORM: VIAL, AMOUNT: 10000 MU
     Route: 050
     Dates: start: 20040712
  41. EPOGEN [Concomitant]
     Dosage: ROUTE: SC, FORM: VIAL, AMOUNT: 4000 MU
     Route: 050
     Dates: start: 20040715
  42. EPOGEN [Concomitant]
     Dosage: ROUTE: SC, FORM: VIAL, AMOUNT: 4000 MU
     Route: 050
     Dates: start: 20040719
  43. EPOGEN [Concomitant]
     Dosage: ROUTE: SC, FORM: VIAL, AMOUNT: 10000 MU
     Route: 050
     Dates: start: 20040823
  44. EPOGEN [Concomitant]
     Dosage: ROUTE: SC, FORM: VIAL, AMOUNT: 5000 MU
     Route: 050
     Dates: start: 20050314
  45. EPOGEN [Concomitant]
     Dosage: DRUG: ERITHROPOIETIN, AMOUNT: 6000 MU
     Route: 058
     Dates: start: 20040727
  46. IMIPENEM [Concomitant]
     Dosage: FORM: VIAL
     Route: 042
     Dates: start: 20040731, end: 20040801
  47. SIROLIMUS [Suspect]
     Route: 048
     Dates: start: 20060705, end: 20060714
  48. TACROLIMUS [Suspect]
     Route: 048
     Dates: start: 20061020
  49. SULFAMETHOXAZOLE AND TRIMETHOPRIM [Concomitant]
     Dosage: DRUG REPORTED: TRIMETHOPRIN-SULFAMETHOXAZOLE
     Route: 048
     Dates: start: 20040323, end: 20040831
  50. VALGANCICLOVIR HCL [Concomitant]
     Dosage: DRUG REPORTED: VALGANCYCLOVIR
     Route: 048
     Dates: start: 20040608
  51. VALGANCICLOVIR HCL [Concomitant]
     Dosage: DRUG REPORTED: VALGANCYCLOVIR
     Route: 048
     Dates: start: 20040623, end: 20040630

REACTIONS (2)
  - COMPLICATIONS OF TRANSPLANTED KIDNEY [None]
  - URINARY TRACT INFECTION [None]
